FAERS Safety Report 6148267-6 (Version None)
Quarter: 2009Q2

REPORT INFORMATION
  Report Type: 
  Country: None (occurrence: None)
  Receive Date: 20090406
  Receipt Date: 20090326
  Transmission Date: 20091009
  Serious: Yes (Other)
  Sender: FDA-Public Use
  Company Number: 2009SP003844

PATIENT
  Sex: Male

DRUGS (5)
  1. INTEGRILIN [Suspect]
     Indication: PERCUTANEOUS CORONARY INTERVENTION
     Dosage: 17MG;INBO, IV
     Route: 040
  2. INTEGRILIN [Suspect]
     Dosage: IV
     Route: 042
  3. HEPARIN [Suspect]
     Indication: DRUG USE FOR UNKNOWN INDICATION
     Dosage: 5000 IU
     Route: 015
  4. ASPIRIN [Concomitant]
  5. PLAVIX [Concomitant]

REACTIONS (3)
  - CHILLS [None]
  - THROMBOCYTOPENIA [None]
  - TREMOR [None]
